FAERS Safety Report 11445887 (Version 1)
Quarter: 2015Q3

REPORT INFORMATION
  Report Type: Spontaneous
  Country: US (occurrence: US)
  Receive Date: 20150831
  Receipt Date: 20150831
  Transmission Date: 20151125
  Serious: No
  Sender: FDA-Public Use
  Company Number: US-ELI_LILLY_AND_COMPANY-US200808001988

PATIENT
  Sex: Female

DRUGS (15)
  1. COZAAR [Concomitant]
     Active Substance: LOSARTAN POTASSIUM
  2. ASPIRIN. [Concomitant]
     Active Substance: ASPIRIN
     Dosage: 81 MG, UNK
  3. THYROXINE [Concomitant]
     Active Substance: LEVOTHYROXINE
  4. NASOCORT [Concomitant]
     Active Substance: BUDESONIDE
  5. ALBUTEROL. [Concomitant]
     Active Substance: ALBUTEROL
  6. MIRALAX [Concomitant]
     Active Substance: POLYETHYLENE GLYCOL 3350
  7. ATENOLOL. [Concomitant]
     Active Substance: ATENOLOL
  8. MOBIC [Concomitant]
     Active Substance: MELOXICAM
  9. CYMBALTA [Suspect]
     Active Substance: DULOXETINE HYDROCHLORIDE
     Indication: DEPRESSION
     Dosage: 60 MG, DAILY (1/D)
  10. LASIX [Concomitant]
     Active Substance: FUROSEMIDE
  11. VITAMIN B [Concomitant]
     Active Substance: VITAMIN B
  12. MELATONIN [Concomitant]
     Active Substance: MELATONIN
  13. TRAMADOL. [Concomitant]
     Active Substance: TRAMADOL
  14. PRILOSEC [Concomitant]
     Active Substance: OMEPRAZOLE MAGNESIUM
  15. PHAZYME [Concomitant]
     Active Substance: DIMETHICONE 410

REACTIONS (1)
  - Hyperkeratosis [Not Recovered/Not Resolved]

NARRATIVE: CASE EVENT DATE: 2006
